FAERS Safety Report 18441010 (Version 1)
Quarter: 2020Q4

REPORT INFORMATION
  Report Type: Spontaneous
  Country: CA (occurrence: CA)
  Receive Date: 20201029
  Receipt Date: 20201029
  Transmission Date: 20210114
  Serious: Yes (Hospitalization, Other)
  Sender: FDA-Public Use
  Company Number: CA-PFIZER INC-2020416944

PATIENT
  Age: 42 Year
  Sex: Male
  Weight: 57 kg

DRUGS (6)
  1. SUBOXONE [Concomitant]
     Active Substance: BUPRENORPHINE HYDROCHLORIDE\NALOXONE HYDROCHLORIDE
  2. TYLENOL [Suspect]
     Active Substance: ACETAMINOPHEN
     Indication: PYREXIA
  3. CLOPIXOL (DECANOATE) [Suspect]
     Active Substance: ZUCLOPENTHIXOL DECANOATE
     Indication: AGITATION
     Dosage: 200 MG
     Route: 030
  4. COGENTIN [Suspect]
     Active Substance: BENZTROPINE MESYLATE
     Indication: AGITATION
  5. ATIVAN [Suspect]
     Active Substance: LORAZEPAM
     Indication: AGITATION
     Dosage: 2 MG, ONCE
     Route: 030
  6. TYLENOL [Suspect]
     Active Substance: ACETAMINOPHEN
     Indication: MUSCLE RIGIDITY

REACTIONS (6)
  - Blood iron decreased [Recovered/Resolved]
  - Pyrexia [Recovered/Resolved]
  - Muscle rigidity [Recovered/Resolved]
  - Muscle atrophy [Recovered/Resolved]
  - White blood cell count increased [Recovered/Resolved]
  - Blood creatine phosphokinase increased [Recovered/Resolved]
